FAERS Safety Report 9058060 (Version 1)
Quarter: 2013Q1

REPORT INFORMATION
  Report Type: Spontaneous
  Country: US (occurrence: None)
  Receive Date: 20130204
  Receipt Date: 20130204
  Transmission Date: 20140127
  Serious: Yes (Other)
  Sender: FDA-Public Use
  Company Number: None

PATIENT
  Sex: Female
  Weight: 80.29 kg

DRUGS (2)
  1. OMEPRAZOLE [Suspect]
  2. OMEPRAZOLE [Suspect]
     Dosage: 5 DAYS AGO

REACTIONS (4)
  - Flatulence [None]
  - Abdominal distension [None]
  - Muscle spasms [None]
  - Muscle spasms [None]
